FAERS Safety Report 7310299-X (Version None)
Quarter: 2011Q1

REPORT INFORMATION
  Report Type: 
  Country: None (occurrence: None)
  Receive Date: 20110224
  Receipt Date: 20110128
  Transmission Date: 20110831
  Serious: No
  Sender: FDA-Public Use
  Company Number: US-B.I. PHARMACEUTICALS,INC./RIDGEFIELD-2010-BP-14816BP

PATIENT
  Sex: Female

DRUGS (7)
  1. DIOVAN [Concomitant]
     Indication: HYPERTENSION
     Route: 048
  2. PRADAXA [Suspect]
     Indication: CEREBROVASCULAR ACCIDENT PROPHYLAXIS
     Dosage: 300 MG
     Route: 048
     Dates: start: 20101207, end: 20101222
  3. LISINOPRIL [Concomitant]
     Indication: HYPERTENSION
     Dosage: 10 MG
  4. HYDROCODONE [Concomitant]
     Indication: BACK PAIN
     Dosage: 500 MG
  5. ATENOLOL [Concomitant]
     Indication: HYPERTENSION
     Dosage: 10 MG
     Route: 048
  6. NIACIN [Concomitant]
     Indication: BLOOD CHOLESTEROL INCREASED
     Dosage: 500 MG
     Route: 048
  7. ZANTAC [Concomitant]
     Indication: BACK PAIN
     Dosage: 150 MG

REACTIONS (7)
  - SWOLLEN TONGUE [None]
  - JOINT SWELLING [None]
  - DYSPEPSIA [None]
  - OEDEMA PERIPHERAL [None]
  - DYSPNOEA [None]
  - GASTRIC PH DECREASED [None]
  - EAR PAIN [None]
